FAERS Safety Report 7769685-6 (Version None)
Quarter: 2011Q3

REPORT INFORMATION
  Report Type: 
  Country: None (occurrence: None)
  Receive Date: 20110922
  Receipt Date: 20100827
  Transmission Date: 20111222
  Serious: No
  Sender: FDA-Public Use
  Company Number: US-ASTRAZENECA-2007UW11737

PATIENT
  Age: 42 Year
  Sex: Female
  Weight: 81.6 kg

DRUGS (25)
  1. SEROQUEL [Suspect]
     Indication: DEPRESSION
     Dosage: 100 MG TO 300 MG
     Route: 048
     Dates: start: 20020401, end: 20060920
  2. ABILIFY [Concomitant]
     Dates: start: 20041229
  3. SEROQUEL [Suspect]
     Dosage: 25-300 MG
     Route: 048
     Dates: start: 20020427, end: 20060920
  4. WELLBUTRIN SR [Concomitant]
     Route: 048
     Dates: start: 20020919
  5. RISPERIDONE [Concomitant]
     Indication: DEPRESSION
     Dates: start: 20020919
  6. LAMICTAL [Concomitant]
     Dates: start: 20061227
  7. ZYPREXA [Concomitant]
     Indication: DEPRESSION
     Dates: start: 20020101
  8. SEROQUEL [Suspect]
     Indication: HALLUCINATION, AUDITORY
     Dosage: 100 MG TO 300 MG
     Route: 048
     Dates: start: 20020401, end: 20060920
  9. GEODON [Concomitant]
     Dosage: 120-160 MG
     Dates: start: 20030212
  10. SEROQUEL [Suspect]
     Indication: SLEEP DISORDER
     Dosage: 100 MG TO 300 MG
     Route: 048
     Dates: start: 20020401, end: 20060920
  11. SEROQUEL [Suspect]
     Dosage: 25-900 MG
     Route: 048
     Dates: start: 20020501
  12. CELEXA [Concomitant]
     Dates: start: 20020613
  13. HALDOL [Concomitant]
     Dates: start: 20060810, end: 20060906
  14. SEROQUEL [Suspect]
     Dosage: 25-300 MG
     Route: 048
     Dates: start: 20020427, end: 20060920
  15. SEROQUEL [Suspect]
     Dosage: 25-900 MG
     Route: 048
     Dates: start: 20020501
  16. AMBIEN [Concomitant]
     Route: 048
     Dates: start: 20040114
  17. SEROQUEL [Suspect]
     Dosage: 25-300 MG
     Route: 048
     Dates: start: 20020427, end: 20060920
  18. GEODON [Concomitant]
     Dates: start: 20021114, end: 20071120
  19. PAXIL [Concomitant]
     Dosage: 20-50 MG
     Route: 048
     Dates: start: 20020919
  20. RISPERIDONE [Concomitant]
     Dates: start: 20020813, end: 20070310
  21. ABILIFY [Concomitant]
     Dates: start: 20040720, end: 20050422
  22. ZOLOFT [Concomitant]
     Dosage: 100 MG ONE AND HALF QD
     Dates: start: 20040114
  23. SEROQUEL [Suspect]
     Dosage: 25-900 MG
     Route: 048
     Dates: start: 20020501
  24. FLUOXETINE [Concomitant]
     Dates: start: 20061227
  25. LEXAPRO [Concomitant]
     Dates: start: 20041229

REACTIONS (7)
  - WEIGHT INCREASED [None]
  - OBESITY [None]
  - MAJOR DEPRESSION [None]
  - TYPE 2 DIABETES MELLITUS [None]
  - DIABETES MELLITUS [None]
  - SOMNOLENCE [None]
  - DIABETIC COMPLICATION [None]
